FAERS Safety Report 9980135 (Version 1)
Quarter: 2014Q1

REPORT INFORMATION
  Report Type: Report from Study
  Country: US (occurrence: US)
  Receive Date: 20140307
  Receipt Date: 20140307
  Transmission Date: 20141002
  Serious: No
  Sender: FDA-Public Use
  Company Number: US-ABBVIE-13P-163-1175475-00

PATIENT
  Age: 19 Year
  Sex: Female

DRUGS (9)
  1. HUMIRA [Suspect]
     Indication: COLITIS ULCERATIVE
     Dates: start: 20131125, end: 20131125
  2. HUMIRA [Suspect]
  3. LIALDA [Concomitant]
     Indication: COLITIS ULCERATIVE
  4. MUSCLE RELAXANTS [Concomitant]
     Indication: PRODUCT USED FOR UNKNOWN INDICATION
  5. ROBINUL [Concomitant]
     Indication: PRODUCT USED FOR UNKNOWN INDICATION
  6. NAUSEA MEDICATION [Concomitant]
     Indication: NAUSEA
  7. WATER PILL [Concomitant]
     Indication: PRODUCT USED FOR UNKNOWN INDICATION
  8. MUCINEX D [Concomitant]
     Indication: HYPERSENSITIVITY
  9. ZYRTEC [Concomitant]
     Indication: HYPERSENSITIVITY

REACTIONS (3)
  - Injection site bruising [Recovering/Resolving]
  - Injection site erythema [Recovered/Resolved]
  - Injection site rash [Recovered/Resolved]
